FAERS Safety Report 10755739 (Version 3)
Quarter: 2015Q2

REPORT INFORMATION
  Report Type: Spontaneous
  Country: SK (occurrence: SK)
  Receive Date: 20150202
  Receipt Date: 20150422
  Transmission Date: 20150821
  Serious: Yes (Hospitalization, Other)
  Sender: FDA-Public Use
  Company Number: SK-ELI_LILLY_AND_COMPANY-SK201501008051

PATIENT
  Age: 37 Year
  Sex: Male

DRUGS (2)
  1. ZYPADHERA [Suspect]
     Active Substance: OLANZAPINE PAMOATE
     Indication: SCHIZOPHRENIA
     Dosage: 405 MG, OTHER
     Route: 030
     Dates: start: 20130821
  2. OLANZAPINE. [Suspect]
     Active Substance: OLANZAPINE
     Indication: PRODUCT USED FOR UNKNOWN INDICATION
     Dosage: 10MG, QD
     Dates: start: 201308, end: 201312

REACTIONS (6)
  - Sedation [Unknown]
  - Blood pressure decreased [Recovered/Resolved]
  - Restlessness [Recovered/Resolved]
  - Weight increased [Unknown]
  - Agitation [Recovered/Resolved]
  - Circulatory collapse [Recovered/Resolved]

NARRATIVE: CASE EVENT DATE: 20150114
